FAERS Safety Report 10458791 (Version 4)
Quarter: 2016Q1

REPORT INFORMATION
  Report Type: Report from Study
  Country: DE (occurrence: DE)
  Receive Date: 20140917
  Receipt Date: 20160114
  Transmission Date: 20160525
  Serious: Yes (Death, Hospitalization)
  Sender: FDA-Public Use
  Company Number: PHHY2014DE094215

PATIENT
  Sex: Female
  Weight: 74 kg

DRUGS (2)
  1. AFINITOR [Suspect]
     Active Substance: EVEROLIMUS
     Indication: BREAST CANCER METASTATIC
     Dosage: 10 MG, ONCE DAILY
     Route: 048
     Dates: start: 20140620
  2. EXEMESTANE. [Concomitant]
     Active Substance: EXEMESTANE
     Indication: BREAST CANCER METASTATIC
     Dosage: 25 MG, ONCE DAILY
     Route: 048
     Dates: start: 20140620

REACTIONS (3)
  - Pleural effusion [Recovered/Resolved with Sequelae]
  - Death [Fatal]
  - Deep vein thrombosis [Recovered/Resolved]

NARRATIVE: CASE EVENT DATE: 20140704
